FAERS Safety Report 23073012 (Version 1)
Quarter: 2023Q4

REPORT INFORMATION
  Report Type: Report from Study
  Country: CA (occurrence: CA)
  Receive Date: 20231017
  Receipt Date: 20231017
  Transmission Date: 20240110
  Serious: Yes (Hospitalization)
  Sender: FDA-Public Use
  Company Number: CA-JNJFOC-20231024364

PATIENT
  Age: 16 Year
  Sex: Male
  Weight: 46 kg

DRUGS (2)
  1. REMICADE [Suspect]
     Active Substance: INFLIXIMAB
     Indication: Crohn^s disease
     Dosage: PATIENT RECEIVED HIS WEEK 0 DOSE AS AN INPATIENT.?LAST INFUSION-02-OCT-2023
     Route: 042
     Dates: start: 20231002
  2. REMICADE [Suspect]
     Active Substance: INFLIXIMAB
     Dosage: PRESCRIBING 5 MG/KG ROUNDED UP TO THE FULL VIAL AT WEEKS 2, THEN 10 MG/KG ROUNDED UP TO THE FULL VIA
     Route: 042
     Dates: start: 202310

REACTIONS (1)
  - Off label use [Unknown]

NARRATIVE: CASE EVENT DATE: 20231001
